FAERS Safety Report 24717717 (Version 3)
Quarter: 2025Q1

REPORT INFORMATION
  Report Type: Report from Study
  Country: IN (occurrence: IN)
  Receive Date: 20241210
  Receipt Date: 20250206
  Transmission Date: 20250408
  Serious: Yes (Hospitalization)
  Sender: ROCHE
  Company Number: IN-ROCHE-10000036889

PATIENT
  Age: 48 Year
  Sex: Male

DRUGS (4)
  1. TECENTRIQ [Suspect]
     Active Substance: ATEZOLIZUMAB
     Indication: Hepatocellular carcinoma
     Dosage: 7TH  CYCLE
     Route: 040
     Dates: start: 20240604
  2. TECENTRIQ [Suspect]
     Active Substance: ATEZOLIZUMAB
     Route: 040
  3. TECENTRIQ [Suspect]
     Active Substance: ATEZOLIZUMAB
     Route: 040
  4. TECENTRIQ [Suspect]
     Active Substance: ATEZOLIZUMAB
     Route: 040

REACTIONS (6)
  - Off label use [Unknown]
  - Anal fissure [Unknown]
  - Neoplasm [Unknown]
  - Haemorrhoids [Unknown]
  - Portal vein thrombosis [Unknown]
  - Abdominal pain upper [Unknown]

NARRATIVE: CASE EVENT DATE: 20240722
